FAERS Safety Report 8306238-5 (Version None)
Quarter: 2012Q2

REPORT INFORMATION
  Report Type: 
  Country: None (occurrence: None)
  Receive Date: 20120423
  Receipt Date: 20120418
  Transmission Date: 20120825
  Serious: No
  Sender: FDA-Public Use
  Company Number: US-PFIZER INC-2012097303

PATIENT
  Sex: Female
  Weight: 82 kg

DRUGS (5)
  1. LYRICA [Suspect]
     Indication: SCIATIC NERVE INJURY
     Dosage: 100 MG, 4X/DAY
     Route: 048
  2. ZIAC [Concomitant]
     Indication: HYPERTENSION
     Dosage: UNK, DAILY
  3. ZOLPIDEM [Concomitant]
     Indication: SLEEP DISORDER
     Dosage: 10 MG, DAILY
  4. NEXIUM [Concomitant]
     Indication: ABDOMINAL PAIN UPPER
     Dosage: 40 MG, DAILY
  5. LYRICA [Suspect]
     Indication: FIBROMYALGIA
     Dosage: 100 MG, 3X/DAY
     Route: 048
     Dates: start: 20120101

REACTIONS (3)
  - DRUG ADMINISTRATION ERROR [None]
  - PAIN [None]
  - NAUSEA [None]
